FAERS Safety Report 24691690 (Version 1)
Quarter: 2024Q4

REPORT INFORMATION
  Report Type: Spontaneous
  Country: US (occurrence: US)
  Receive Date: 20241203
  Receipt Date: 20241203
  Transmission Date: 20250114
  Serious: Yes (Hospitalization)
  Sender: MYLAN
  Company Number: US-MYLANLABS-2024M1106694

PATIENT
  Age: 51 Year
  Sex: Female

DRUGS (3)
  1. FUROSEMIDE [Suspect]
     Active Substance: FUROSEMIDE
     Indication: Pulmonary hypertension
     Dosage: 20 MILLIGRAM, QD
     Route: 065
  2. PREDNISONE [Suspect]
     Active Substance: PREDNISONE
     Indication: Ulcer
     Dosage: 40 MILLIGRAM, QD,PRESCRIBED A 14-DAY COURSE
     Route: 065
  3. CAPTOPRIL [Suspect]
     Active Substance: CAPTOPRIL
     Indication: Scleroderma renal crisis
     Dosage: UNK
     Route: 048

REACTIONS (1)
  - Drug ineffective [Unknown]
